FAERS Safety Report 7889407-8 (Version None)
Quarter: 2011Q4

REPORT INFORMATION
  Report Type: 
  Country: None (occurrence: None)
  Receive Date: 20111103
  Receipt Date: 20111101
  Transmission Date: 20120403
  Serious: Yes (Other)
  Sender: FDA-Public Use
  Company Number: US-TEVA-307511USA

PATIENT
  Sex: Male

DRUGS (2)
  1. TAMSULOSIN HCL [Suspect]
  2. LANSOPRAZOLE [Suspect]
     Route: 048

REACTIONS (2)
  - ANGIOEDEMA [None]
  - RASH PRURITIC [None]
